FAERS Safety Report 9306625 (Version 1)
Quarter: 2013Q1

REPORT INFORMATION
  Report Type: Spontaneous
  Country: JP (occurrence: None)
  Receive Date: 20130221
  Receipt Date: 20130221
  Transmission Date: 20140127
  Serious: Yes (Hospitalization, Disabling, Other)
  Sender: FDA-Public Use
  Company Number: 2011-089122

PATIENT
  Age: 57 Year
  Sex: Female
  Weight: 52 kg

DRUGS (2)
  1. VEGF TRAP-EYE (INJECTION) (VEGF TRAP) [Suspect]
     Indication: CHOROIDAL NEOVASCULARISATION
     Dosage: 174 DAYS?
     Route: 031
     Dates: start: 20110304, end: 20110824
  2. CRESTOR (ROSUVASTATIN) TABLET [Concomitant]

REACTIONS (2)
  - Macular hole [None]
  - Cataract [None]
